FAERS Safety Report 10076058 (Version 2)
Quarter: 2014Q2

REPORT INFORMATION
  Report Type: Spontaneous
  Country: US (occurrence: US)
  Receive Date: 20140414
  Receipt Date: 20140627
  Transmission Date: 20141212
  Serious: No
  Sender: FDA-Public Use
  Company Number: US-PFIZER INC-2014100555

PATIENT
  Sex: Male

DRUGS (4)
  1. GLIPIZIDE [Suspect]
     Dosage: 10 MG, 2X/DAY
  2. METFORMIN HCL [Suspect]
     Dosage: 1000 MG, 2X/DAY
  3. JANUVIA [Suspect]
     Dosage: 100 MG, DAILY
  4. VICTOZA [Suspect]
     Dosage: UNK

REACTIONS (3)
  - Glycosylated haemoglobin increased [Unknown]
  - Blood triglycerides increased [Unknown]
  - Blood glucose decreased [Unknown]
